FAERS Safety Report 16052136 (Version 2)
Quarter: 2019Q1

REPORT INFORMATION
  Report Type: Spontaneous
  Country: US (occurrence: US)
  Receive Date: 20190308
  Receipt Date: 20190319
  Transmission Date: 20190418
  Serious: No
  Sender: FDA-Public Use
  Company Number: US-SA-2019SA065046

PATIENT
  Sex: Male

DRUGS (1)
  1. PRALUENT [Suspect]
     Active Substance: ALIROCUMAB
     Indication: TYPE V HYPERLIPIDAEMIA
     Dosage: 150 MG, QOW
     Route: 058

REACTIONS (12)
  - Fatigue [Unknown]
  - Ear infection [Unknown]
  - Musculoskeletal chest pain [Unknown]
  - Feeling abnormal [Unknown]
  - Myalgia [Unknown]
  - Sinusitis [Unknown]
  - Headache [Unknown]
  - Gait disturbance [Unknown]
  - Eye irritation [Unknown]
  - Urinary tract infection [Unknown]
  - Movement disorder [Unknown]
  - Blister [Unknown]
